FAERS Safety Report 16977380 (Version 1)
Quarter: 2019Q4

REPORT INFORMATION
  Report Type: Spontaneous
  Country: US (occurrence: US)
  Receive Date: 20191031
  Receipt Date: 20191031
  Transmission Date: 20200122
  Serious: No
  Sender: FDA-Public Use
  Company Number: US-AMGEN-USASP2019167721

PATIENT
  Age: 65 Year
  Sex: Male

DRUGS (1)
  1. REPATHA [Suspect]
     Active Substance: EVOLOCUMAB
     Indication: HYPERLIPIDAEMIA
     Dosage: 140 MILLIGRAM, Q2WK
     Route: 065
     Dates: start: 20191001

REACTIONS (5)
  - Oropharyngeal pain [Unknown]
  - Anxiety [Unknown]
  - Paraesthesia [Unknown]
  - Abdominal distension [Unknown]
  - Throat irritation [Unknown]

NARRATIVE: CASE EVENT DATE: 201910
